FAERS Safety Report 7364301-X (Version None)
Quarter: 2011Q1

REPORT INFORMATION
  Report Type: 
  Country: None (occurrence: None)
  Receive Date: 20110321
  Receipt Date: 20110310
  Transmission Date: 20110831
  Serious: Yes (Hospitalization)
  Sender: FDA-Public Use
  Company Number: B0706516A

PATIENT
  Sex: Male
  Weight: 76 kg

DRUGS (11)
  1. ROCEPHIN [Concomitant]
     Indication: BRONCHITIS
     Dosage: 1G PER DAY
     Route: 030
  2. DUPHALAC [Concomitant]
     Indication: CONSTIPATION
     Route: 048
     Dates: start: 20100428
  3. COVERSYL [Concomitant]
     Indication: HYPERTENSION
     Dosage: 4MG PER DAY
     Route: 048
     Dates: start: 20040101
  4. PREDNISONE [Suspect]
     Indication: MULTIPLE MYELOMA
     Route: 048
     Dates: start: 20100206
  5. PLAVIX [Concomitant]
     Indication: THROMBOSIS PROPHYLAXIS
     Route: 048
     Dates: start: 20070101
  6. THALIDOMIDE [Suspect]
     Indication: MULTIPLE MYELOMA
     Route: 048
     Dates: start: 20100206
  7. KARDEGIC [Concomitant]
     Indication: THROMBOSIS PROPHYLAXIS
     Dosage: 75MG PER DAY
     Route: 048
     Dates: start: 20080101
  8. SIMVASTATIN [Concomitant]
     Indication: HYPERCHOLESTEROLAEMIA
     Dosage: 20MG PER DAY
     Route: 048
     Dates: start: 20040101
  9. MELPHALAN [Suspect]
     Indication: MULTIPLE MYELOMA
     Dates: start: 20100206
  10. BISOPROLOL FUMARATE [Concomitant]
     Indication: CORONARY ARTERY INSUFFICIENCY
     Dosage: 5MG PER DAY
     Route: 048
     Dates: start: 20070101
  11. CLASTOBAN [Concomitant]
     Indication: PROPHYLAXIS
     Dosage: 800MG PER DAY
     Route: 048
     Dates: start: 20100206

REACTIONS (1)
  - PNEUMONIA [None]
